FAERS Safety Report 5489981-5 (Version None)
Quarter: 2007Q4

REPORT INFORMATION
  Report Type: 
  Country: None (occurrence: None)
  Receive Date: 20071018
  Receipt Date: 20071010
  Transmission Date: 20080405
  Serious: Yes (Disabling)
  Sender: FDA-Public Use
  Company Number: BR-ROCHE-507044

PATIENT
  Age: 41 Year
  Sex: Male
  Weight: 63 kg

DRUGS (3)
  1. PEGASYS [Suspect]
     Indication: HEPATITIS C
     Dosage: FORM: VIAL, STRENGTH: 180 MCG/.5 ML
     Route: 058
     Dates: end: 20070101
  2. RIBAVIRIN [Concomitant]
     Indication: HEPATITIS C
     Route: 048
     Dates: end: 20070101
  3. METFORMIN HCL [Concomitant]
     Route: 048

REACTIONS (4)
  - ANAEMIA [None]
  - FURUNCLE [None]
  - PYREXIA [None]
  - RETINAL DETACHMENT [None]
